FAERS Safety Report 6654795-7 (Version None)
Quarter: 2010Q1

REPORT INFORMATION
  Report Type: 
  Country: None (occurrence: None)
  Receive Date: 20100328
  Receipt Date: 20100322
  Transmission Date: 20100710
  Serious: Yes (Other)
  Sender: FDA-Public Use
  Company Number: DE-BRISTOL-MYERS SQUIBB COMPANY-15029366

PATIENT
  Sex: Female

DRUGS (1)
  1. HYDROXYUREA [Suspect]
     Dosage: TAKEN APPROXIMATELY FOR 4 TO 5 YEARS
     Dates: start: 20050101

REACTIONS (2)
  - ACTINIC KERATOSIS [None]
  - SKIN DISCOLOURATION [None]
